FAERS Safety Report 14076579 (Version 2)
Quarter: 2017Q4

REPORT INFORMATION
  Report Type: Spontaneous
  Country: FR (occurrence: FR)
  Receive Date: 20171011
  Receipt Date: 20171201
  Transmission Date: 20180321
  Serious: Yes (Other)
  Sender: FDA-Public Use
  Company Number: FR-TEVA-814001ROM

PATIENT
  Sex: Female

DRUGS (1)
  1. COPAXONE [Suspect]
     Active Substance: GLATIRAMER ACETATE
     Dosage: 20 MILLIGRAM/MILLILITERS DAILY;
     Route: 058
     Dates: start: 20070514, end: 20141006

REACTIONS (5)
  - Multiple sclerosis relapse [Unknown]
  - Lipodystrophy acquired [Recovered/Resolved]
  - Skin discomfort [Unknown]
  - Pain [Unknown]
  - Dysaesthesia [Unknown]

NARRATIVE: CASE EVENT DATE: 2007
